FAERS Safety Report 22857000 (Version 3)
Quarter: 2023Q4

REPORT INFORMATION
  Report Type: Spontaneous
  Country: US (occurrence: US)
  Receive Date: 20230823
  Receipt Date: 20231117
  Transmission Date: 20240109
  Serious: No
  Sender: FDA-Public Use
  Company Number: US-Stemline Therapeutics, Inc.-2023ST002184

PATIENT
  Age: 78 Year
  Sex: Female

DRUGS (4)
  1. ORSERDU [Suspect]
     Active Substance: ELACESTRANT
     Indication: Product used for unknown indication
     Dosage: 345 MG ONCE EVERY OTHER DAY
     Route: 048
  2. ORSERDU [Suspect]
     Active Substance: ELACESTRANT
     Dosage: 86 MG EVERY OTHER DAY FOR ONE WEEK, AND THEN 86 MG EVERY DAY
     Route: 048
  3. ORSERDU [Suspect]
     Active Substance: ELACESTRANT
     Dosage: PRESCRIBED DOSAGE IS 258MG DAILY.
     Route: 048
  4. ORSERDU [Suspect]
     Active Substance: ELACESTRANT
     Dosage: THE PATIENT IS ALTERNATING BETWEEN 86MG AND 172MG EACH DAY.
     Route: 048

REACTIONS (5)
  - Product use issue [Unknown]
  - Underdose [Recovered/Resolved]
  - Intentional product misuse [Not Recovered/Not Resolved]
  - Diarrhoea [Unknown]
  - Nausea [Unknown]

NARRATIVE: CASE EVENT DATE: 20230828
